FAERS Safety Report 5620308-1 (Version None)
Quarter: 2008Q1

REPORT INFORMATION
  Report Type: 
  Country: None (occurrence: None)
  Receive Date: 20080208
  Receipt Date: 20080118
  Transmission Date: 20080703
  Serious: Yes (Hospitalization)
  Sender: FDA-Public Use
  Company Number: SE-JNJFOC-20080201681

PATIENT
  Age: 54 Year
  Sex: Female

DRUGS (5)
  1. REMICADE [Suspect]
     Indication: RHEUMATOID ARTHRITIS
     Route: 042
  2. METHOTREXATE [Concomitant]
     Route: 048
  3. FOLACIN [Concomitant]
     Route: 048
  4. KLIOGEST [Concomitant]
     Route: 048
  5. ORUDIS [Concomitant]
     Route: 048

REACTIONS (3)
  - CHEST PAIN [None]
  - PULMONARY INFARCTION [None]
  - TUBERCULIN TEST POSITIVE [None]
